FAERS Safety Report 12616136 (Version 2)
Quarter: 2016Q3

REPORT INFORMATION
  Report Type: Spontaneous
  Country: IT (occurrence: IT)
  Receive Date: 20160802
  Receipt Date: 20160822
  Transmission Date: 20161109
  Serious: Yes (Hospitalization)
  Sender: FDA-Public Use
  Company Number: IT-VALIDUS PHARMACEUTICALS LLC-IT-2016VAL002323

PATIENT
  Age: 9 Year
  Sex: Female

DRUGS (1)
  1. CARBAMAZEPINE. [Suspect]
     Active Substance: CARBAMAZEPINE
     Indication: EPILEPSY
     Dosage: 20 MG/KG, 2 DAILY DOSES

REACTIONS (4)
  - Rash [Recovered/Resolved]
  - Petechiae [Recovered/Resolved]
  - Purpura [Recovered/Resolved]
  - Thrombocytopenic purpura [Recovered/Resolved]
